FAERS Safety Report 7369029-8 (Version None)
Quarter: 2011Q1

REPORT INFORMATION
  Report Type: 
  Country: None (occurrence: None)
  Receive Date: 20110309
  Receipt Date: 20110301
  Transmission Date: 20110831
  Serious: Yes (Hospitalization, Other)
  Sender: FDA-Public Use
  Company Number: 2010SP014822

PATIENT
  Age: 30 Year
  Sex: Female
  Weight: 113.3993 kg

DRUGS (2)
  1. NUVARING [Suspect]
     Indication: CONTRACEPTION
     Dates: start: 20060101, end: 20080101
  2. COUMADIN [Suspect]
     Indication: COAGULOPATHY
     Dates: start: 20080308, end: 20090308

REACTIONS (10)
  - PULMONARY EMBOLISM [None]
  - THYROID DISORDER [None]
  - HYPOTHALAMO-PITUITARY DISORDER [None]
  - DYSPNOEA [None]
  - PARATHYROID DISORDER [None]
  - ADRENAL DISORDER [None]
  - DEEP VEIN THROMBOSIS [None]
  - PANCREATIC DISORDER [None]
  - PAIN [None]
  - HEADACHE [None]
